FAERS Safety Report 13527457 (Version 7)
Quarter: 2018Q2

REPORT INFORMATION
  Report Type: Spontaneous
  Country: US (occurrence: US)
  Receive Date: 20170509
  Receipt Date: 20180621
  Transmission Date: 20180711
  Serious: Yes (Hospitalization, Other)
  Sender: FDA-Public Use
  Company Number: US-GLAXOSMITHKLINE-US2017GSK065749

PATIENT
  Sex: Female

DRUGS (28)
  1. ADVAIR DISKUS [Suspect]
     Active Substance: FLUTICASONE PROPIONATE\SALMETEROL XINAFOATE
     Indication: BRONCHITIS CHRONIC
  2. INCRUSE ELLIPTA [Suspect]
     Active Substance: UMECLIDINIUM BROMIDE
     Indication: NEOPLASM MALIGNANT
  3. INCRUSE ELLIPTA [Suspect]
     Active Substance: UMECLIDINIUM BROMIDE
     Indication: ILL-DEFINED DISORDER
  4. NEXIUM [Concomitant]
     Active Substance: ESOMEPRAZOLE MAGNESIUM
  5. LOSARTAN. [Concomitant]
     Active Substance: LOSARTAN
  6. CODEINE COUGH SYRUP [Concomitant]
     Active Substance: CODEINE
  7. ADVAIR DISKUS [Suspect]
     Active Substance: FLUTICASONE PROPIONATE\SALMETEROL XINAFOATE
     Indication: MYCOBACTERIUM AVIUM COMPLEX INFECTION
  8. COMBIVENT [Concomitant]
     Active Substance: ALBUTEROL SULFATE\IPRATROPIUM BROMIDE
  9. ADVAIR DISKUS [Suspect]
     Active Substance: FLUTICASONE PROPIONATE\SALMETEROL XINAFOATE
     Indication: EMPHYSEMA
     Dosage: 250/50 MCG
  10. ADVAIR DISKUS [Suspect]
     Active Substance: FLUTICASONE PROPIONATE\SALMETEROL XINAFOATE
     Indication: TUBERCULOSIS
     Dosage: 1 PUFF(S), BID
     Route: 055
  11. ADVAIR DISKUS [Suspect]
     Active Substance: FLUTICASONE PROPIONATE\SALMETEROL XINAFOATE
     Indication: LUNG DISORDER
  12. THEOPHYLLINE [Concomitant]
     Active Substance: THEOPHYLLINE ANHYDROUS
  13. BENZONATATE. [Concomitant]
     Active Substance: BENZONATATE
  14. ADVAIR DISKUS [Suspect]
     Active Substance: FLUTICASONE PROPIONATE\SALMETEROL XINAFOATE
     Indication: ASTHMA
     Dosage: 100/50 MCG
     Dates: start: 2004
  15. ADVAIR DISKUS [Suspect]
     Active Substance: FLUTICASONE PROPIONATE\SALMETEROL XINAFOATE
     Indication: ILL-DEFINED DISORDER
  16. ADVAIR DISKUS [Suspect]
     Active Substance: FLUTICASONE PROPIONATE\SALMETEROL XINAFOATE
     Indication: EXPOSURE TO CHEMICAL POLLUTION
  17. INCRUSE ELLIPTA [Suspect]
     Active Substance: UMECLIDINIUM BROMIDE
     Indication: TUBERCULOSIS
  18. INCRUSE ELLIPTA [Suspect]
     Active Substance: UMECLIDINIUM BROMIDE
     Indication: LUNG DISORDER
  19. INCRUSE ELLIPTA [Suspect]
     Active Substance: UMECLIDINIUM BROMIDE
     Indication: ASTHMA
     Dosage: UNK
     Dates: start: 2015
  20. INCRUSE ELLIPTA [Suspect]
     Active Substance: UMECLIDINIUM BROMIDE
     Indication: EMPHYSEMA
  21. DILTIAZEM. [Concomitant]
     Active Substance: DILTIAZEM
  22. ATORVASTATIN [Concomitant]
     Active Substance: ATORVASTATIN
  23. ADVAIR DISKUS [Suspect]
     Active Substance: FLUTICASONE PROPIONATE\SALMETEROL XINAFOATE
     Indication: CHRONIC OBSTRUCTIVE PULMONARY DISEASE
  24. INCRUSE ELLIPTA [Suspect]
     Active Substance: UMECLIDINIUM BROMIDE
     Indication: CHRONIC OBSTRUCTIVE PULMONARY DISEASE
  25. PATADAY [Concomitant]
     Active Substance: OLOPATADINE HYDROCHLORIDE
  26. ADVAIR DISKUS [Suspect]
     Active Substance: FLUTICASONE PROPIONATE\SALMETEROL XINAFOATE
     Indication: NEOPLASM MALIGNANT
  27. LEVOTHYROXINE. [Concomitant]
     Active Substance: LEVOTHYROXINE
  28. RESTASIS [Concomitant]
     Active Substance: CYCLOSPORINE

REACTIONS (22)
  - Tuberculosis [Not Recovered/Not Resolved]
  - Haematemesis [Recovering/Resolving]
  - Emphysema [Not Recovered/Not Resolved]
  - Aphonia [Not Recovered/Not Resolved]
  - Deafness [Not Recovered/Not Resolved]
  - Bronchitis chronic [Not Recovered/Not Resolved]
  - Cardiac valve disease [Unknown]
  - Product use in unapproved indication [Unknown]
  - Lung neoplasm malignant [Not Recovered/Not Resolved]
  - Chronic obstructive pulmonary disease [Not Recovered/Not Resolved]
  - Vomiting [Unknown]
  - Chest pain [Unknown]
  - Dyspnoea [Not Recovered/Not Resolved]
  - Arthritis [Unknown]
  - Emergency care [Unknown]
  - Biopsy [Not Recovered/Not Resolved]
  - Exposure to chemical pollution [Unknown]
  - Mycobacterium avium complex infection [Not Recovered/Not Resolved]
  - Cough [Not Recovered/Not Resolved]
  - Joint range of motion decreased [Unknown]
  - Throat cancer [Unknown]
  - Pain [Unknown]
